FAERS Safety Report 4603957-9 (Version None)
Quarter: 2005Q1

REPORT INFORMATION
  Report Type: 
  Country: None (occurrence: None)
  Receive Date: 20050310
  Receipt Date: 20050201
  Transmission Date: 20050727
  Serious: Yes (Other)
  Sender: FDA-Public Use
  Company Number: 116911

PATIENT
  Age: 56 Year
  Sex: Female
  Weight: 65 kg

DRUGS (2)
  1. IMIGRAN [Suspect]
     Indication: MIGRAINE
     Dosage: 50MG SINGLE DOSE
     Route: 048
     Dates: start: 20050120, end: 20050120
  2. PENICILLIN V [Concomitant]
     Indication: TONSILLITIS
     Route: 048
     Dates: start: 20050118, end: 20050123

REACTIONS (4)
  - CHILLS [None]
  - GENITAL PAIN [None]
  - OEDEMA GENITAL [None]
  - POSTMENOPAUSAL HAEMORRHAGE [None]
